FAERS Safety Report 14405459 (Version 3)
Quarter: 2018Q2

REPORT INFORMATION
  Report Type: Spontaneous
  Country: US (occurrence: US)
  Receive Date: 20180118
  Receipt Date: 20180412
  Transmission Date: 20180711
  Serious: No
  Sender: FDA-Public Use
  Company Number: US-PFIZER INC-2018018901

PATIENT
  Age: 47 Year
  Sex: Female

DRUGS (2)
  1. XELJANZ [Suspect]
     Active Substance: TOFACITINIB CITRATE
     Dosage: 5 MG, UNK
     Dates: start: 20171214
  2. XELJANZ [Suspect]
     Active Substance: TOFACITINIB CITRATE
     Indication: RHEUMATOID ARTHRITIS
     Dosage: 5 MG, UNK
     Dates: start: 20171121

REACTIONS (10)
  - Dyspnoea [Unknown]
  - Drug ineffective [Unknown]
  - Musculoskeletal stiffness [Not Recovered/Not Resolved]
  - Sneezing [Unknown]
  - Tremor [Unknown]
  - Nasopharyngitis [Unknown]
  - Throat tightness [Unknown]
  - Cough [Unknown]
  - Pain [Not Recovered/Not Resolved]
  - Pyrexia [Unknown]

NARRATIVE: CASE EVENT DATE: 20180111
